FAERS Safety Report 6974633-2 (Version None)
Quarter: 2010Q3

REPORT INFORMATION
  Report Type: 
  Country: None (occurrence: None)
  Receive Date: 20100909
  Receipt Date: 20100909
  Transmission Date: 20110219
  Serious: Yes (Hospitalization, Other)
  Sender: FDA-Public Use
  Company Number: None

PATIENT
  Age: 70 Month
  Sex: Female
  Weight: 70.3075 kg

DRUGS (1)
  1. PROMETHAZINE [Suspect]

REACTIONS (3)
  - BLISTER [None]
  - BODY TEMPERATURE INCREASED [None]
  - DERMATITIS [None]
